FAERS Safety Report 4771099-8 (Version None)
Quarter: 2005Q3

REPORT INFORMATION
  Report Type: 
  Country: None (occurrence: None)
  Receive Date: 20050914
  Receipt Date: 20050901
  Transmission Date: 20060218
  Serious: Yes (Other)
  Sender: FDA-Public Use
  Company Number: 2005115691

PATIENT
  Age: 44 Year
  Sex: Male
  Weight: 71.6683 kg

DRUGS (1)
  1. VIAGRA [Suspect]
     Indication: ERECTILE DYSFUNCTION
     Dosage: 100 MG(50 MG, AS NECESSARY)
     Dates: start: 20050601

REACTIONS (5)
  - BLADDER DISORDER [None]
  - DRUG INEFFECTIVE [None]
  - SCAR [None]
  - SKIN CANCER [None]
  - URINARY RETENTION [None]
